FAERS Safety Report 8657398 (Version 2)
Quarter: 2013Q4

REPORT INFORMATION
  Report Type: Spontaneous
  Country: GB (occurrence: GB)
  Receive Date: 20120710
  Receipt Date: 20131105
  Transmission Date: 20140711
  Serious: Yes (Hospitalization, Other)
  Sender: FDA-Public Use
  Company Number: GB-MSD-1207GBR000041

PATIENT
  Age: 82 Year
  Sex: Male

DRUGS (6)
  1. JANUVIA [Suspect]
     Indication: DIABETES MELLITUS
     Dosage: 100 MG, UNK
     Route: 048
     Dates: start: 20120301, end: 20120618
  2. EZETIMIBE [Concomitant]
  3. GLICLAZIDE [Concomitant]
  4. METFORMIN [Concomitant]
  5. ACETAMINOPHEN [Concomitant]
  6. SOLIFENACIN SUCCINATE [Concomitant]

REACTIONS (3)
  - Amylase increased [Unknown]
  - Abdominal pain [Unknown]
  - Pancreatitis acute [Recovered/Resolved]
